FAERS Safety Report 7726563-6 (Version None)
Quarter: 2011Q3

REPORT INFORMATION
  Report Type: 
  Country: None (occurrence: None)
  Receive Date: 20110902
  Receipt Date: 20110825
  Transmission Date: 20111222
  Serious: Yes (Other)
  Sender: FDA-Public Use
  Company Number: PHHY2011FR60812

PATIENT
  Sex: Female

DRUGS (3)
  1. STALEVO 100 [Suspect]
     Indication: EXTRAPYRAMIDAL DISORDER
     Dosage: UNK UKN, UNK
  2. DOMPERIDONE [Concomitant]
     Dosage: UNK UKN, UNK
  3. ARTANE [Concomitant]

REACTIONS (7)
  - TOXIC SKIN ERUPTION [None]
  - DERMATITIS BULLOUS [None]
  - TRANSIENT ACANTHOLYTIC DERMATOSIS [None]
  - RASH VESICULAR [None]
  - PAPULE [None]
  - PRURIGO [None]
  - RASH ERYTHEMATOUS [None]
